FAERS Safety Report 25677252 (Version 3)
Quarter: 2025Q4

REPORT INFORMATION
  Report Type: Spontaneous
  Country: US (occurrence: US)
  Receive Date: 20250813
  Receipt Date: 20251110
  Transmission Date: 20260118
  Serious: No
  Sender: SANOFI AVENTIS
  Company Number: US-SA-2025SA236595

PATIENT
  Age: 38 Year
  Sex: Male

DRUGS (1)
  1. DUPIXENT [Suspect]
     Active Substance: DUPILUMAB
     Indication: Eosinophilic oesophagitis
     Dosage: 300 MG, QW
     Route: 058
     Dates: start: 202506

REACTIONS (8)
  - Alopecia [Unknown]
  - Nausea [Not Recovered/Not Resolved]
  - Dehydration [Unknown]
  - Mental disorder [Unknown]
  - General physical health deterioration [Unknown]
  - Blood glucose increased [Unknown]
  - Vertigo [Unknown]
  - Vision blurred [Not Recovered/Not Resolved]

NARRATIVE: CASE EVENT DATE: 20250101
